FAERS Safety Report 5927936-4 (Version None)
Quarter: 2008Q4

REPORT INFORMATION
  Report Type: 
  Country: None (occurrence: None)
  Receive Date: 20081022
  Receipt Date: 20081022
  Transmission Date: 20090506
  Serious: Yes (Other)
  Sender: FDA-Public Use
  Company Number: None

PATIENT
  Sex: Male
  Weight: 89.25 kg

DRUGS (1)
  1. SELZENTRY [Suspect]
     Dates: start: 20080828, end: 20081009

REACTIONS (7)
  - BALANCE DISORDER [None]
  - FALL [None]
  - FATIGUE [None]
  - IMPAIRED DRIVING ABILITY [None]
  - SEDATION [None]
  - SOMNOLENCE [None]
  - VISION BLURRED [None]
